FAERS Safety Report 14939345 (Version 2)
Quarter: 2018Q3

REPORT INFORMATION
  Report Type: Report from Study
  Country: US (occurrence: US)
  Receive Date: 20180525
  Receipt Date: 20180815
  Transmission Date: 20181010
  Serious: No
  Sender: FDA-Public Use
  Company Number: US-SA-2018SA130979

PATIENT
  Age: 13 Year
  Sex: Male
  Weight: 51 kg

DRUGS (6)
  1. CONCERTA [Concomitant]
     Active Substance: METHYLPHENIDATE HYDROCHLORIDE
     Dosage: UNK
     Route: 048
     Dates: start: 201610
  2. ALBUTEROL SULFATE. [Concomitant]
     Active Substance: ALBUTEROL SULFATE
     Dosage: UNK
     Route: 055
     Dates: start: 2012
  3. ATORVASTATIN [Suspect]
     Active Substance: ATORVASTATIN
     Dosage: 20 MG, QD
     Dates: start: 20170607
  4. ALIROCUMAB [Suspect]
     Active Substance: ALIROCUMAB
     Dosage: 2 DF,UNK
     Route: 058
     Dates: start: 20180501
  5. BENZONATATE. [Concomitant]
     Active Substance: BENZONATATE
     Dosage: UNK
     Route: 048
     Dates: start: 201801
  6. SINGULAIR [Concomitant]
     Active Substance: MONTELUKAST SODIUM
     Dosage: UNK
     Route: 048
     Dates: start: 2012

REACTIONS (1)
  - Injection site reaction [Recovered/Resolved]

NARRATIVE: CASE EVENT DATE: 20180501
